FAERS Safety Report 20323034 (Version 1)
Quarter: 2022Q1

REPORT INFORMATION
  Report Type: Spontaneous
  Country: US (occurrence: None)
  Receive Date: 20220111
  Receipt Date: 20220111
  Transmission Date: 20220423
  Serious: Yes (Other)
  Sender: FDA-Public Use
  Company Number: None

PATIENT
  Age: 37 Year
  Sex: Female
  Weight: 72.6 kg

DRUGS (1)
  1. CASIRIVIMAB\IMDEVIMAB [Suspect]
     Active Substance: CASIRIVIMAB\IMDEVIMAB
     Indication: COVID-19
     Dosage: OTHER FREQUENCY : ONCE;?
     Route: 042

REACTIONS (8)
  - Head discomfort [None]
  - Palpitations [None]
  - Infusion related reaction [None]
  - Tremor [None]
  - Oropharyngeal discomfort [None]
  - Condition aggravated [None]
  - Sensory disturbance [None]
  - Chest pain [None]

NARRATIVE: CASE EVENT DATE: 20220106
